FAERS Safety Report 11330077 (Version 2)
Quarter: 2015Q3

REPORT INFORMATION
  Report Type: Spontaneous
  Country: FR (occurrence: FR)
  Receive Date: 20150803
  Receipt Date: 20150818
  Transmission Date: 20151125
  Serious: Yes (Hospitalization)
  Sender: FDA-Public Use
  Company Number: FR-PFIZER INC-2015250863

PATIENT
  Age: 63 Year
  Sex: Female

DRUGS (21)
  1. KIDROLASE [Suspect]
     Active Substance: ASPARAGINASE
     Indication: ACUTE LYMPHOCYTIC LEUKAEMIA (IN REMISSION)
     Dosage: 9600 IU, CYCLIC
     Route: 041
     Dates: start: 20150608, end: 20150608
  2. DAUNORUBICIN [Concomitant]
     Active Substance: DAUNORUBICIN
     Indication: ACUTE LYMPHOCYTIC LEUKAEMIA (IN REMISSION)
     Dosage: 48 MG, DAILY
     Route: 042
     Dates: start: 20150601, end: 20150603
  3. AUGMENTIN [Concomitant]
     Active Substance: AMOXICILLIN\CLAVULANATE POTASSIUM
     Indication: PYREXIA
     Dosage: UNK
     Dates: start: 20150613, end: 20150615
  4. KIDROLASE [Suspect]
     Active Substance: ASPARAGINASE
     Dosage: 9600 IU, CYCLIC
     Route: 041
     Dates: start: 20150624, end: 20150624
  5. KIDROLASE [Suspect]
     Active Substance: ASPARAGINASE
     Dosage: 9600 IU, CYCLIC
     Route: 041
     Dates: start: 20150610, end: 20150610
  6. KIDROLASE [Suspect]
     Active Substance: ASPARAGINASE
     Dosage: 9600 IU, CYCLIC
     Route: 041
     Dates: start: 20150612, end: 20150612
  7. CYTARABINE. [Concomitant]
     Active Substance: CYTARABINE
     Indication: ACUTE LYMPHOCYTIC LEUKAEMIA (IN REMISSION)
     Dosage: 40 MG, CYCLIC
     Dates: start: 20150602, end: 20150608
  8. XANAX [Suspect]
     Active Substance: ALPRAZOLAM
     Dosage: 0.25 MG, 3X/DAY
     Dates: end: 20150626
  9. BACTRIM [Suspect]
     Active Substance: SULFAMETHOXAZOLE\TRIMETHOPRIM
     Dosage: 3 DF, WEEKLY
     Dates: end: 20150626
  10. OFLOCET [Concomitant]
     Active Substance: OFLOXACIN
     Indication: PYREXIA
     Dosage: UNK
     Dates: start: 20150613, end: 20150615
  11. VINCRISTINE HOSPIRA [Suspect]
     Active Substance: VINCRISTINE
     Indication: ACUTE LYMPHOCYTIC LEUKAEMIA (IN REMISSION)
     Dosage: 2 MG, WEEKLY
     Route: 042
     Dates: start: 20150601, end: 20150622
  12. ZELITREX [Suspect]
     Active Substance: VALACYCLOVIR HYDROCHLORIDE
     Dosage: 500 MG, 2X/DAY
     Dates: end: 20150626
  13. STILNOX [Suspect]
     Active Substance: ZOLPIDEM TARTRATE
     Dosage: 0.5 DF, AS NEEDED
     Dates: end: 20150626
  14. METHYLPREDNISOLONE. [Concomitant]
     Active Substance: METHYLPREDNISOLONE
     Indication: ACUTE LYMPHOCYTIC LEUKAEMIA (IN REMISSION)
     Dosage: 40 MG, CYCLIC
     Dates: start: 20150602, end: 20150608
  15. MYCAMINE [Concomitant]
     Active Substance: MICAFUNGIN SODIUM
     Dosage: UNK
     Dates: start: 201506, end: 20150618
  16. ENDOXAN [Suspect]
     Active Substance: CYCLOPHOSPHAMIDE
     Indication: ACUTE LYMPHOCYTIC LEUKAEMIA (IN REMISSION)
     Dosage: 1200 MG, CYCLIC
     Route: 042
     Dates: start: 20150601, end: 20150615
  17. FORTUM [Concomitant]
     Active Substance: CEFTAZIDIME
     Dosage: UNK
     Dates: start: 201506, end: 20150618
  18. KIDROLASE [Suspect]
     Active Substance: ASPARAGINASE
     Dosage: 9600 IU, CYCLIC
     Route: 041
     Dates: start: 20150620, end: 20150620
  19. KIDROLASE [Suspect]
     Active Substance: ASPARAGINASE
     Dosage: 9600 IU, CYCLIC
     Route: 041
     Dates: start: 20150622, end: 20150622
  20. CORTANCYL [Concomitant]
     Active Substance: PREDNISONE
     Indication: ACUTE LYMPHOCYTIC LEUKAEMIA (IN REMISSION)
     Dosage: 95 MG, 1X/DAY
     Route: 048
     Dates: start: 20150601, end: 20150607
  21. METHOTREXATE [Concomitant]
     Active Substance: METHOTREXATE
     Indication: ACUTE LYMPHOCYTIC LEUKAEMIA (IN REMISSION)
     Dosage: 15 MG, CYCLIC
     Dates: start: 20150602, end: 20150608

REACTIONS (2)
  - Hepatitis [Recovered/Resolved]
  - Aplasia [Recovered/Resolved]

NARRATIVE: CASE EVENT DATE: 20150622
